FAERS Safety Report 15588406 (Version 1)
Quarter: 2018Q4

REPORT INFORMATION
  Report Type: Spontaneous
  Country: US (occurrence: US)
  Receive Date: 20181105
  Receipt Date: 20181105
  Transmission Date: 20190205
  Serious: No
  Sender: FDA-Public Use
  Company Number: US-AMGEN-USASP2018154671

PATIENT
  Age: 47 Year
  Sex: Female

DRUGS (1)
  1. ENBREL [Suspect]
     Active Substance: ETANERCEPT
     Indication: PRODUCT USED FOR UNKNOWN INDICATION
     Route: 065

REACTIONS (9)
  - Musculoskeletal stiffness [Unknown]
  - Migraine [Unknown]
  - Condition aggravated [Not Recovered/Not Resolved]
  - Rash generalised [Unknown]
  - Contusion [Unknown]
  - Pruritus generalised [Unknown]
  - Drug effect decreased [Unknown]
  - Joint range of motion decreased [Unknown]
  - Pain in extremity [Unknown]

NARRATIVE: CASE EVENT DATE: 201810
